FAERS Safety Report 12762680 (Version 1)
Quarter: 2016Q3

REPORT INFORMATION
  Report Type: Spontaneous
  Country: DE (occurrence: DE)
  Receive Date: 20160920
  Receipt Date: 20160920
  Transmission Date: 20161109
  Serious: Yes (Other)
  Sender: FDA-Public Use
  Company Number: DE-CELLTRION HEALTHCARE HUNGARY KFT-2016DE007446

PATIENT

DRUGS (4)
  1. SOLU DECORTIN [Concomitant]
     Active Substance: PREDNISOLONE SODIUM SUCCINATE
  2. REMSIMA [Suspect]
     Active Substance: INFLIXIMAB
     Dosage: 350 MG, TID
     Route: 042
     Dates: start: 20160713, end: 20160713
  3. REMSIMA [Suspect]
     Active Substance: INFLIXIMAB
     Indication: CROHN^S DISEASE
     Dosage: 350 MG, UNK
     Route: 042
     Dates: start: 20160527, end: 20160527
  4. REMSIMA [Suspect]
     Active Substance: INFLIXIMAB
     Dosage: 350 MG, TID
     Route: 042

REACTIONS (6)
  - Hypotension [Recovered/Resolved]
  - Heart rate increased [Recovered/Resolved]
  - Bradycardia [Recovered/Resolved]
  - Cough [Recovered/Resolved]
  - Pyrexia [Recovered/Resolved]
  - Hypersensitivity [Recovered/Resolved]

NARRATIVE: CASE EVENT DATE: 20160713
